FAERS Safety Report 15614977 (Version 1)
Quarter: 2018Q4

REPORT INFORMATION
  Report Type: Other
  Country: IN (occurrence: IN)
  Receive Date: 20181114
  Receipt Date: 20181114
  Transmission Date: 20190205
  Serious: Yes (Life-Threatening, Hospitalization)
  Sender: FDA-Public Use
  Company Number: IN-ORCHID HEALTHCARE-2058822

PATIENT
  Age: 28 Year
  Sex: Female

DRUGS (2)
  1. AMLODIPINE BESYLATE. [Suspect]
     Active Substance: AMLODIPINE BESYLATE
     Route: 065
  2. TELMISARTAN. [Suspect]
     Active Substance: TELMISARTAN
     Route: 065

REACTIONS (7)
  - Acute kidney injury [Recovered/Resolved]
  - Vasoplegia syndrome [Recovered/Resolved]
  - Suicide attempt [Recovered/Resolved]
  - Metabolic acidosis [Recovered/Resolved]
  - Hypotension [Recovered/Resolved]
  - Shock [Recovered/Resolved]
  - Overdose [Recovered/Resolved]
